FAERS Safety Report 4807178-6 (Version None)
Quarter: 2005Q4

REPORT INFORMATION
  Report Type: 
  Country: None (occurrence: None)
  Receive Date: 20051024
  Receipt Date: 20051017
  Transmission Date: 20060501
  Serious: Yes (Death)
  Sender: FDA-Public Use
  Company Number: PHBS2005JP15353

PATIENT
  Age: 67 Year
  Sex: Female

DRUGS (2)
  1. ANTIHYPERTENSIVES [Suspect]
     Indication: HYPERTENSION
     Route: 065
     Dates: start: 19980101
  2. LAMISIL [Suspect]
     Indication: NAIL TINEA
     Dosage: 125 MG, QD
     Route: 048
     Dates: start: 20050928, end: 20050930

REACTIONS (6)
  - BLOOD CREATININE INCREASED [None]
  - BLOOD LACTATE DEHYDROGENASE INCREASED [None]
  - DEATH [None]
  - FATIGUE [None]
  - OEDEMA [None]
  - RENAL DISORDER [None]
